FAERS Safety Report 23705893 (Version 1)
Quarter: 2024Q2

REPORT INFORMATION
  Report Type: Report from Study
  Country: US (occurrence: US)
  Receive Date: 20240404
  Receipt Date: 20240404
  Transmission Date: 20240716
  Serious: Yes (Death, Hospitalization, Other)
  Sender: FDA-Public Use
  Company Number: US-BIOVITRUM-2024-US-005223

PATIENT
  Sex: Male

DRUGS (2)
  1. ANAKINRA [Suspect]
     Active Substance: ANAKINRA
     Indication: Haemophagocytic lymphohistiocytosis
     Dosage: 100MG TWICE DAILY
     Route: 058
  2. ACTEMRA [Concomitant]
     Active Substance: TOCILIZUMAB
     Indication: Product used for unknown indication

REACTIONS (3)
  - Pulmonary hypertension [Fatal]
  - Multiple organ dysfunction syndrome [Unknown]
  - Off label use [Unknown]
